FAERS Safety Report 8118441-8 (Version None)
Quarter: 2012Q1

REPORT INFORMATION
  Report Type: 
  Country: None (occurrence: None)
  Receive Date: 20120201
  Receipt Date: 20110201
  Transmission Date: 20120608
  Serious: Yes (Hospitalization, Other)
  Sender: FDA-Public Use
  Company Number: 2010005115

PATIENT
  Age: 48 Year
  Sex: Female

DRUGS (2)
  1. ERYTHROMYCIN [Suspect]
     Indication: LOWER RESPIRATORY TRACT INFECTION
  2. TACROLIMUS [Suspect]
     Indication: HIRSUTISM
     Dosage: 2 MG (1 MG, 2 IN 1 D)

REACTIONS (7)
  - HAEMOLYTIC ANAEMIA [None]
  - DRUG LEVEL INCREASED [None]
  - TOXICITY TO VARIOUS AGENTS [None]
  - AZOTAEMIA [None]
  - DRUG INTERACTION [None]
  - HAEMOLYTIC URAEMIC SYNDROME [None]
  - THROMBOCYTOPENIA [None]
